FAERS Safety Report 6131367-4 (Version None)
Quarter: 2009Q1

REPORT INFORMATION
  Report Type: 
  Country: None (occurrence: None)
  Receive Date: 20090325
  Receipt Date: 20080515
  Transmission Date: 20090719
  Serious: Yes (Life-Threatening)
  Sender: FDA-Public Use
  Company Number: US-BRISTOL-MYERS SQUIBB COMPANY-14156426

PATIENT
  Age: 53 Year
  Sex: Male

DRUGS (2)
  1. ERBITUX [Suspect]
     Indication: HEAD AND NECK CANCER
     Dosage: FIRST TIME LOADING DOSE OF 400 MG/M2.
     Route: 042
     Dates: start: 20080219, end: 20080219
  2. BENADRYL [Concomitant]
     Indication: PREMEDICATION
     Route: 042
     Dates: start: 20080219

REACTIONS (5)
  - APHASIA [None]
  - DYSPNOEA [None]
  - HOT FLUSH [None]
  - LARYNGEAL OEDEMA [None]
  - PRURITUS [None]
